FAERS Safety Report 26071105 (Version 3)
Quarter: 2025Q4

REPORT INFORMATION
  Report Type: Spontaneous
  Country: PY (occurrence: PY)
  Receive Date: 20251120
  Receipt Date: 20251226
  Transmission Date: 20260117
  Serious: Yes (Other)
  Sender: ROCHE
  Company Number: PY-ROCHE-10000437282

PATIENT
  Age: 51 Year
  Sex: Female

DRUGS (4)
  1. PHESGO [Suspect]
     Active Substance: HYALURONIDASE-ZZXF\PERTUZUMAB\TRASTUZUMAB
     Indication: HER2 positive breast cancer
     Dosage: PERTUZUMAB 420MG, TRASTUZUMAB 680MG?FREQUENCY WAS NOT REPORTED
     Route: 041
  2. PERJETA [Suspect]
     Active Substance: PERTUZUMAB
     Indication: HER2 positive breast cancer
     Dosage: FREQUENCY WAS NOT REPORTED
     Route: 041
  3. DOCETAXEL [Concomitant]
     Active Substance: DOCETAXEL
     Indication: HER2 positive breast cancer
     Dosage: FREQUENCY WAS NOT REPORTED
  4. CARBOPLATIN [Concomitant]
     Active Substance: CARBOPLATIN
     Indication: HER2 positive breast cancer
     Dosage: FREQUENCY WAS NOT REPORTED

REACTIONS (2)
  - Dermatitis [Recovered/Resolved]
  - Antinuclear antibody positive [Recovered/Resolved]

NARRATIVE: CASE EVENT DATE: 20251020
